FAERS Safety Report 24690143 (Version 1)
Quarter: 2024Q4

REPORT INFORMATION
  Report Type: Spontaneous
  Country: US (occurrence: US)
  Receive Date: 20241203
  Receipt Date: 20241203
  Transmission Date: 20250115
  Serious: Yes (Hospitalization)
  Sender: HIKMA
  Company Number: US-HIKMA PHARMACEUTICALS USA INC.-US-H14001-24-11217

PATIENT
  Age: 62 Year
  Sex: Male

DRUGS (3)
  1. DOXYCYCLINE [Suspect]
     Active Substance: DOXYCYCLINE
     Indication: Product used for unknown indication
     Dosage: 100 MILLIGRAM, Q12H
     Route: 065
  2. ERYTHROMYCIN [Interacting]
     Active Substance: ERYTHROMYCIN
     Indication: Product used for unknown indication
     Dosage: 500 MILLIGRAM, Q6H
     Route: 065
  3. TACROLIMUS [Interacting]
     Active Substance: TACROLIMUS
     Indication: Product used for unknown indication
     Dosage: UNKNOWN
     Route: 065

REACTIONS (2)
  - Crystal nephropathy [Recovering/Resolving]
  - Condition aggravated [Recovering/Resolving]
